FAERS Safety Report 9349016 (Version 1)
Quarter: 2013Q2

REPORT INFORMATION
  Report Type: Spontaneous
  Country: US (occurrence: US)
  Receive Date: 20130614
  Receipt Date: 20130614
  Transmission Date: 20140414
  Serious: Yes (Death, Hospitalization)
  Sender: FDA-Public Use
  Company Number: US-JNJFOC-20130608740

PATIENT
  Age: 86 Year
  Sex: Male

DRUGS (2)
  1. XARELTO [Suspect]
     Indication: THROMBOSIS PROPHYLAXIS
     Route: 048
     Dates: start: 201305, end: 201305
  2. XARELTO [Suspect]
     Indication: KNEE ARTHROPLASTY
     Route: 048
     Dates: start: 201305, end: 201305

REACTIONS (6)
  - Death [Fatal]
  - Haemoptysis [Not Recovered/Not Resolved]
  - Yellow skin [Not Recovered/Not Resolved]
  - Haematoma [Not Recovered/Not Resolved]
  - Cardiac failure [Unknown]
  - Multimorbidity [Unknown]
